FAERS Safety Report 14160919 (Version 3)
Quarter: 2019Q2

REPORT INFORMATION
  Report Type: Report from Study
  Country: BR (occurrence: BR)
  Receive Date: 20171106
  Receipt Date: 20190402
  Transmission Date: 20190711
  Serious: Yes (Hospitalization, Other)
  Sender: FDA-Public Use
  Company Number: BR-SHIRE-BR201723038

PATIENT

DRUGS (2)
  1. TONIC [Concomitant]
     Indication: PRODUCT USED FOR UNKNOWN INDICATION
  2. ELAPRASE [Suspect]
     Active Substance: IDURSULFASE
     Indication: MUCOPOLYSACCHARIDOSIS II
     Dosage: 6 DOSAGE FORM, 1X/WEEK
     Route: 042
     Dates: start: 201809

REACTIONS (15)
  - Cardiac failure [Recovering/Resolving]
  - Inappropriate schedule of product administration [Unknown]
  - Carpal tunnel syndrome [Unknown]
  - Dysphonia [Unknown]
  - Influenza [Unknown]
  - Respiratory arrest [Unknown]
  - Blood pressure decreased [Unknown]
  - Oropharyngeal pain [Unknown]
  - Depressed mood [Not Recovered/Not Resolved]
  - Bone cyst [Not Recovered/Not Resolved]
  - Nervousness [Not Recovered/Not Resolved]
  - Myocardial infarction [Unknown]
  - Pharyngitis [Unknown]
  - Musculoskeletal stiffness [Unknown]
  - Insomnia [Unknown]
